FAERS Safety Report 9647666 (Version 2)
Quarter: 2015Q2

REPORT INFORMATION
  Report Type: Report from Study
  Country: JP (occurrence: JP)
  Receive Date: 20131028
  Receipt Date: 20150521
  Transmission Date: 20150821
  Serious: Yes (Hospitalization)
  Sender: FDA-Public Use
  Company Number: JP-ROCHE-1291781

PATIENT
  Age: 73 Year
  Sex: Male
  Weight: 66 kg

DRUGS (3)
  1. CALBLOCK [Concomitant]
     Active Substance: AZELNIDIPINE
     Route: 048
  2. MICARDIS [Concomitant]
     Active Substance: TELMISARTAN
     Route: 048
  3. METHOXY POLYETHYLENE GLYCOL-EPOETIN BETA [Suspect]
     Active Substance: METHOXY POLYETHYLENE GLYCOL-EPOETIN BETA
     Indication: NEPHROGENIC ANAEMIA
     Dosage: MOST RECENT DOSE WAS ADMINISTERED ON 25/SEP/2013
     Route: 058
     Dates: start: 20120824

REACTIONS (1)
  - Chronic kidney disease [Recovered/Resolved]

NARRATIVE: CASE EVENT DATE: 20130921
